FAERS Safety Report 13490497 (Version 1)
Quarter: 2017Q2

REPORT INFORMATION
  Report Type: Report from Study
  Country: None (occurrence: AT)
  Receive Date: 20170427
  Receipt Date: 20170427
  Transmission Date: 20170830
  Serious: Yes (Death, Hospitalization, Other)
  Sender: FDA-Public Use
  Company Number: AT-ABBVIE-13P-009-1036459-00

PATIENT
  Age: 77 Year
  Sex: Male
  Weight: 70 kg

DRUGS (22)
  1. SEROQUEL [Concomitant]
     Active Substance: QUETIAPINE FUMARATE
     Indication: PRODUCT USED FOR UNKNOWN INDICATION
  2. MADOPAR CR [Concomitant]
     Active Substance: BENSERAZIDE HYDROCHLORIDE\LEVODOPA
     Indication: PARKINSON^S DISEASE
     Dosage: 100 MG/25 MG  (0-0-0-1)
     Route: 048
  3. LOVENOX [Concomitant]
     Active Substance: ENOXAPARIN SODIUM
     Indication: PRODUCT USED FOR UNKNOWN INDICATION
  4. ALNA RETARD [Concomitant]
     Active Substance: TAMSULOSIN HYDROCHLORIDE
     Indication: PRODUCT USED FOR UNKNOWN INDICATION
     Route: 048
  5. MOVICOL [Concomitant]
     Active Substance: POLYETHYLENE GLYCOL 3350\POTASSIUM CHLORIDE\SODIUM BICARBONATE\SODIUM CHLORIDE
     Indication: PRODUCT USED FOR UNKNOWN INDICATION
  6. SIMVASTATIN. [Concomitant]
     Active Substance: SIMVASTATIN
     Indication: HYPERCHOLESTEROLAEMIA
     Route: 048
  7. PANTOPRAZOL + PH [Concomitant]
     Indication: PRODUCT USED FOR UNKNOWN INDICATION
  8. TRITTICO [Concomitant]
     Active Substance: TRAZODONE HYDROCHLORIDE
     Indication: PRODUCT USED FOR UNKNOWN INDICATION
     Dosage: 1/3
  9. ALLOPURINOL. [Concomitant]
     Active Substance: ALLOPURINOL
     Indication: HYPERURICAEMIA
     Route: 048
  10. AMLODIPIN [Concomitant]
     Active Substance: AMLODIPINE BESYLATE
     Indication: PRODUCT USED FOR UNKNOWN INDICATION
     Dosage: 1/2 TWICE A DAY
     Route: 048
  11. THROMBO ASS [Concomitant]
     Active Substance: ASPIRIN
     Indication: LEUKOENCEPHALOPATHY
     Route: 048
  12. DUODOPA [Suspect]
     Active Substance: CARBIDOPA\LEVODOPA
     Indication: PARKINSON^S DISEASE
     Dosage: 4.5 ML/H
     Route: 050
     Dates: start: 20111126, end: 20121210
  13. UROSIN [Concomitant]
     Active Substance: ALLOPURINOL
     Indication: PRODUCT USED FOR UNKNOWN INDICATION
     Dosage: 1/2
  14. SIMVASTATIN + PH [Concomitant]
     Indication: PRODUCT USED FOR UNKNOWN INDICATION
  15. EXELON [Concomitant]
     Active Substance: RIVASTIGMINE TARTRATE
     Indication: PRODUCT USED FOR UNKNOWN INDICATION
     Route: 062
  16. SICCASAN [Concomitant]
     Indication: PRODUCT USED FOR UNKNOWN INDICATION
     Dosage: LEFT EYE
  17. ULTRACORTENOL [Concomitant]
     Active Substance: PREDNISOLONE ACETATE
     Indication: PRODUCT USED FOR UNKNOWN INDICATION
     Dosage: LEFT EYE
  18. PK MERZ [Concomitant]
     Active Substance: AMANTADINE SULFATE
     Indication: PARKINSON^S DISEASE
  19. FERROGRAD FOL [Concomitant]
     Indication: PRODUCT USED FOR UNKNOWN INDICATION
  20. RIVOTRIL [Concomitant]
     Active Substance: CLONAZEPAM
     Indication: PRODUCT USED FOR UNKNOWN INDICATION
  21. TIMOLOL-SANTEN [Concomitant]
     Indication: PRODUCT USED FOR UNKNOWN INDICATION
     Dosage: LEFT EYE
  22. KCL RETARD [Concomitant]
     Active Substance: POTASSIUM CHLORIDE
     Indication: PRODUCT USED FOR UNKNOWN INDICATION

REACTIONS (28)
  - General physical health deterioration [Unknown]
  - Dysphonia [Unknown]
  - Gait disturbance [Unknown]
  - Hypercholesterolaemia [Unknown]
  - Dysarthria [Unknown]
  - Muscle rigidity [Unknown]
  - Death [Fatal]
  - Dementia [Unknown]
  - Hypertension [Unknown]
  - Reduced facial expression [Unknown]
  - Hyperuricaemia [Unknown]
  - Eye infection [Unknown]
  - Device issue [Unknown]
  - Restlessness [Unknown]
  - Somnolence [Unknown]
  - On and off phenomenon [Unknown]
  - Keratitis [Unknown]
  - Cognitive disorder [Unknown]
  - Constipation [Unknown]
  - Amaurosis [Unknown]
  - Iron deficiency anaemia [Unknown]
  - Hypokinesia [Unknown]
  - Glaucoma [Unknown]
  - Immobile [Unknown]
  - Dyskinesia [Unknown]
  - Bradykinesia [Unknown]
  - Mood altered [Unknown]
  - Device connection issue [Unknown]

NARRATIVE: CASE EVENT DATE: 20121210
